FAERS Safety Report 7134052-5 (Version None)
Quarter: 2010Q4

REPORT INFORMATION
  Report Type: 
  Country: None (occurrence: None)
  Receive Date: 20101203
  Receipt Date: 20101129
  Transmission Date: 20110411
  Serious: Yes (Death)
  Sender: FDA-Public Use
  Company Number: FR-JNJFOC-20101200061

PATIENT
  Age: 42 Year
  Sex: Female

DRUGS (3)
  1. DURAGESIC-100 [Suspect]
     Indication: CANCER PAIN
     Route: 062
  2. FENTANYL CITRATE [Suspect]
     Indication: CANCER PAIN
     Route: 048
  3. FENTANYL CITRATE [Suspect]
     Route: 048

REACTIONS (1)
  - UTERINE CANCER [None]
